FAERS Safety Report 8581689-2 (Version None)
Quarter: 2012Q3

REPORT INFORMATION
  Report Type: 
  Country: None (occurrence: None)
  Receive Date: 20120801
  Receipt Date: 20120801
  Transmission Date: 20120928
  Serious: Yes (Life-Threatening, Hospitalization)
  Sender: FDA-Public Use
  Company Number: None

PATIENT
  Sex: Female
  Weight: 61.6892 kg

DRUGS (3)
  1. CYMBALTA [Suspect]
     Indication: DEPRESSION
     Dosage: 60 MG CAPSULE 1/DAY PO APPROXIMATELY 2.5 MONTHS
     Route: 048
  2. GENERIC EXCEDRIN ACET 250MG, ASPIRIN 250MG. CVS [Suspect]
     Indication: HEADACHE
     Dosage: 1-2 TABLET WHEN NEEDED PO APPROXIMATELY 2 MONTHS
     Route: 048
  3. ESTROTEST [Concomitant]

REACTIONS (5)
  - HEADACHE [None]
  - STRESS [None]
  - HEAD INJURY [None]
  - VOMITING [None]
  - SUBARACHNOID HAEMORRHAGE [None]
